FAERS Safety Report 6571790-7 (Version None)
Quarter: 2010Q1

REPORT INFORMATION
  Report Type: 
  Country: None (occurrence: None)
  Receive Date: 20100205
  Receipt Date: 20100128
  Transmission Date: 20100710
  Serious: Yes (Other)
  Sender: FDA-Public Use
  Company Number: FR-JNJFOC-20100200836

PATIENT
  Sex: Female
  Weight: 68 kg

DRUGS (5)
  1. EPITOMAX [Suspect]
     Indication: PARTIAL SEIZURES
     Route: 048
  2. EPITOMAX [Suspect]
     Route: 048
  3. EPITOMAX [Suspect]
     Route: 048
  4. KEPPRA [Suspect]
     Indication: DRUG USE FOR UNKNOWN INDICATION
     Route: 065
  5. TRILEPTAL [Concomitant]
     Route: 065

REACTIONS (2)
  - MALNUTRITION [None]
  - WEIGHT DECREASED [None]
